FAERS Safety Report 8787499 (Version 1)
Quarter: 2012Q4

REPORT INFORMATION
  Report Type: Report from Study
  Country: US (occurrence: US)
  Receive Date: 20120914
  Receipt Date: 20120914
  Transmission Date: 20130627
  Serious: No
  Sender: FDA-Public Use
  Company Number: US-VERTEX PHARMACEUTICAL INC.-AE-2012-009315

PATIENT
  Age: 55 Year
  Sex: Male
  Weight: 114.55 kg

DRUGS (8)
  1. INCIVEK [Suspect]
     Indication: HEPATITIS C
     Route: 048
  2. PEGASYS [Concomitant]
     Indication: HEPATITIS C
  3. RIBAPAK [Concomitant]
     Indication: HEPATITIS C
  4. DILAUDID [Concomitant]
  5. VALIUM [Concomitant]
  6. LEVOTHYROXIN [Concomitant]
  7. VITAMIN C [Concomitant]
  8. VITAMIN D GUMMIE CHW [Concomitant]

REACTIONS (5)
  - White blood cell count decreased [Unknown]
  - Blood potassium decreased [Unknown]
  - Diarrhoea [Unknown]
  - Nausea [Unknown]
  - Anaemia [Unknown]
